FAERS Safety Report 12188008 (Version 3)
Quarter: 2017Q1

REPORT INFORMATION
  Report Type: Report from Study
  Country: US (occurrence: US)
  Receive Date: 20160317
  Receipt Date: 20170127
  Transmission Date: 20170428
  Serious: No
  Sender: FDA-Public Use
  Company Number: PHEH2016US006449

PATIENT
  Age: 61 Year
  Sex: Female
  Weight: 192 kg

DRUGS (1)
  1. GILENYA [Suspect]
     Active Substance: FINGOLIMOD HYDROCHLORIDE
     Indication: PRODUCT USED FOR UNKNOWN INDICATION
     Dosage: UNK
     Route: 065
     Dates: start: 20160304

REACTIONS (5)
  - Headache [Unknown]
  - Balance disorder [Recovering/Resolving]
  - Fall [Unknown]
  - Diarrhoea [Unknown]
  - Ear disorder [Unknown]

NARRATIVE: CASE EVENT DATE: 20160304
